FAERS Safety Report 8571283-1 (Version None)
Quarter: 2012Q3

REPORT INFORMATION
  Report Type: 
  Country: None (occurrence: None)
  Receive Date: 20120806
  Receipt Date: 20120725
  Transmission Date: 20120928
  Serious: Yes (Other)
  Sender: FDA-Public Use
  Company Number: BR-SANOFI-AVENTIS-2012SA053109

PATIENT
  Age: 73 Year
  Sex: Female
  Weight: 66 kg

DRUGS (9)
  1. LANTUS [Suspect]
     Indication: TYPE 2 DIABETES MELLITUS
     Route: 058
     Dates: start: 20060101
  2. LEVOTHYROXINE SODIUM [Concomitant]
     Dosage: STRENGTH: 75 MCGFREQUENCY: 1 TABLET IN THE MORNING IN FASTING
     Route: 048
     Dates: start: 20060101
  3. AUTOPEN 24 [Suspect]
     Indication: DEVICE THERAPY
     Dates: start: 20060101
  4. VITAMIN B1 TAB [Concomitant]
     Route: 048
     Dates: start: 20120501
  5. LOSARTAN POTASSIUM [Concomitant]
     Dosage: STRENGTH: 500 MG
     Route: 048
     Dates: start: 20060101
  6. HYDROCHLOROTHIAZDE TAB [Concomitant]
     Indication: HYPERTENSION
     Dosage: STRENGTH: 25 MGFREQUENCY: AFTER BREAKFAST
     Route: 048
     Dates: start: 20060101
  7. OMEPRAZOLE [Concomitant]
     Indication: GASTRIC DISORDER
     Dosage: STRENGTH: 20 MGFREQUENCY: EVERY MORNING IN FASTING
     Route: 048
  8. CLONAZEPAM [Concomitant]
     Dosage: STRENGTH: 2MGFREQUENCY: BEFORE SLEEP
     Route: 048
     Dates: start: 20050101
  9. HUMALOG [Concomitant]
     Indication: TYPE 2 DIABETES MELLITUS
     Dosage: FREQUENCY: BEFORE LUNCH AND DINNER
     Route: 058
     Dates: start: 20060101

REACTIONS (7)
  - FORMICATION [None]
  - NEOPLASM MALIGNANT [None]
  - BALANCE DISORDER [None]
  - MUSCLE SPASMS [None]
  - HEARING IMPAIRED [None]
  - NERVOUS SYSTEM DISORDER [None]
  - HYPOAESTHESIA [None]
